FAERS Safety Report 18260080 (Version 1)
Quarter: 2020Q3

REPORT INFORMATION
  Report Type: Spontaneous
  Country: US (occurrence: US)
  Receive Date: 20200913
  Receipt Date: 20200913
  Transmission Date: 20201103
  Serious: No
  Sender: FDA-Public Use
  Company Number: US-STRIDES ARCOLAB LIMITED-2019SP010038

PATIENT
  Age: 54 Year
  Sex: Female

DRUGS (4)
  1. BUDESONIDE. [Concomitant]
     Active Substance: BUDESONIDE
     Indication: AUTOIMMUNE ENTEROPATHY
     Dosage: UNK
     Route: 065
  2. SOLU?MEDROL [Concomitant]
     Active Substance: METHYLPREDNISOLONE SODIUM SUCCINATE
     Indication: AUTOIMMUNE ENTEROPATHY
     Dosage: UNK
     Route: 042
  3. CYCLOSPORINE. [Concomitant]
     Active Substance: CYCLOSPORINE
     Indication: AUTOIMMUNE ENTEROPATHY
     Dosage: UNK
     Route: 065
  4. TACROLIMUS. [Suspect]
     Active Substance: TACROLIMUS
     Indication: AUTOIMMUNE ENTEROPATHY
     Dosage: UNK
     Route: 065

REACTIONS (1)
  - Off label use [Unknown]
